FAERS Safety Report 20526563 (Version 1)
Quarter: 2022Q1

REPORT INFORMATION
  Report Type: Spontaneous
  Country: IN (occurrence: IN)
  Receive Date: 20220228
  Receipt Date: 20220228
  Transmission Date: 20220423
  Serious: Yes (Other)
  Sender: FDA-Public Use
  Company Number: IN-PFIZER INC-2021102091

PATIENT
  Age: 62 Year
  Sex: Female

DRUGS (4)
  1. PALBOCICLIB [Suspect]
     Active Substance: PALBOCICLIB
     Indication: Breast cancer metastatic
     Dosage: 125 MG, ONCE A DAY
     Route: 048
     Dates: start: 20200821
  2. PALBOCICLIB [Suspect]
     Active Substance: PALBOCICLIB
     Dosage: 125 MG, ONCE A DAY (FOR 21 DAYS/30)
     Route: 048
  3. FEMARA [Concomitant]
     Active Substance: LETROZOLE
     Dosage: 1 DF, DAILY
     Dates: start: 202008
  4. Zoldonate [Concomitant]
     Dosage: ON DAY 1
     Route: 042

REACTIONS (17)
  - Weight decreased [Unknown]
  - Typhoid fever [Unknown]
  - Diarrhoea [Unknown]
  - Cyst [Unknown]
  - C-reactive protein increased [Unknown]
  - Haemoglobin decreased [Unknown]
  - Red blood cell count decreased [Unknown]
  - Mean cell volume abnormal [Unknown]
  - Red cell distribution width increased [Unknown]
  - Neutrophil count increased [Unknown]
  - Blood test abnormal [Unknown]
  - Neoplasm progression [Unknown]
  - Product prescribing error [Unknown]
  - Back pain [Unknown]
  - Flatulence [Unknown]
  - Off label use [Unknown]
  - Vomiting [Unknown]

NARRATIVE: CASE EVENT DATE: 20210525
